FAERS Safety Report 6565500-7 (Version None)
Quarter: 2010Q1

REPORT INFORMATION
  Report Type: 
  Country: None (occurrence: None)
  Receive Date: 20100201
  Receipt Date: 20100120
  Transmission Date: 20100710
  Serious: Yes (Life-Threatening, Other)
  Sender: FDA-Public Use
  Company Number: US-ELI_LILLY_AND_COMPANY-US201001004416

PATIENT
  Sex: Male

DRUGS (1)
  1. EFFIENT [Suspect]

REACTIONS (1)
  - AORTIC DISSECTION [None]
